FAERS Safety Report 11131492 (Version 1)
Quarter: 2015Q2

REPORT INFORMATION
  Report Type: Report from Study
  Country: US (occurrence: US)
  Receive Date: 20150522
  Receipt Date: 20150522
  Transmission Date: 20150821
  Serious: No
  Sender: FDA-Public Use
  Company Number: US-MALLINCKRODT-QSC-2014-0354

PATIENT
  Sex: Male
  Weight: 68.27 kg

DRUGS (1)
  1. H.P. ACTHAR [Suspect]
     Active Substance: CORTICOTROPIN
     Indication: GLOMERULONEPHRITIS MEMBRANOUS
     Dosage: 80 UNITS, BIW
     Route: 030
     Dates: start: 20140324

REACTIONS (2)
  - Insomnia [Unknown]
  - Food craving [Unknown]

NARRATIVE: CASE EVENT DATE: 2014
